FAERS Safety Report 6492002-9 (Version None)
Quarter: 2009Q4

REPORT INFORMATION
  Report Type: 
  Country: None (occurrence: None)
  Receive Date: 20091208
  Receipt Date: 20091002
  Transmission Date: 20100525
  Serious: Yes (Other)
  Sender: FDA-Public Use
  Company Number: 002485

PATIENT
  Sex: Male

DRUGS (2)
  1. VIMPAT [Suspect]
     Indication: EPILEPSY
     Dosage: (100 MG BID)
  2. KEPPRA [Suspect]
     Indication: EPILEPSY
     Dosage: (1000 MG) ; (250 MG BID)

REACTIONS (5)
  - DECREASED APPETITE [None]
  - GLIOBLASTOMA [None]
  - NEOPLASM RECURRENCE [None]
  - PARTIAL SEIZURES [None]
  - WEIGHT DECREASED [None]
